FAERS Safety Report 12180145 (Version 1)
Quarter: 2016Q1

REPORT INFORMATION
  Report Type: Spontaneous
  Country: US (occurrence: None)
  Receive Date: 20160314
  Receipt Date: 20160314
  Transmission Date: 20160526
  Serious: Yes (Disabling)
  Sender: FDA-Public Use
  Company Number: None

PATIENT
  Age: 61 Month
  Sex: Female
  Weight: 79.38 kg

DRUGS (1)
  1. URSODIOL 300 MG WATSON [Suspect]
     Active Substance: URSODIOL
     Indication: BILIARY CIRRHOSIS PRIMARY
     Dosage: 4 TWICE DAILY, TAKEN BY MOUTH

REACTIONS (9)
  - Thirst [None]
  - Pain in extremity [None]
  - Bone pain [None]
  - Fatigue [None]
  - Asthenia [None]
  - Arthralgia [None]
  - Tendon pain [None]
  - Headache [None]
  - Product substitution issue [None]
